FAERS Safety Report 6423350-6 (Version None)
Quarter: 2009Q4

REPORT INFORMATION
  Report Type: 
  Country: None (occurrence: None)
  Receive Date: 20091102
  Receipt Date: 20091027
  Transmission Date: 20100525
  Serious: Yes (Death, Hospitalization, Disabling, Other)
  Sender: FDA-Public Use
  Company Number: JP-PFIZER INC-2009206469

PATIENT
  Age: 82 Year

DRUGS (10)
  1. AZULFIDINE [Suspect]
     Indication: RHEUMATOID ARTHRITIS
     Dosage: 500 MG, 1X/DAY
     Dates: start: 20081022, end: 20090417
  2. PREDNISOLONE AND PREDNISOLONE STEAGLATE [Suspect]
     Route: 048
  3. RHEUMATREX [Suspect]
     Indication: RHEUMATOID ARTHRITIS
     Dosage: UNK
     Dates: start: 20081022, end: 20090417
  4. LOXONIN [Concomitant]
  5. ONE-ALPHA [Concomitant]
  6. URIEF [Concomitant]
     Route: 048
  7. FLIVAS [Concomitant]
     Route: 048
  8. OMEPRAL [Concomitant]
     Route: 048
     Dates: start: 20090129
  9. MUCOSTA [Concomitant]
     Route: 048
     Dates: start: 20090129
  10. FERROMIA [Concomitant]
     Route: 048
     Dates: start: 20080312

REACTIONS (10)
  - CALCULUS BLADDER [None]
  - CEREBRAL HAEMORRHAGE [None]
  - CYSTITIS BACTERIAL [None]
  - GASTROINTESTINAL HAEMORRHAGE [None]
  - IRON DEFICIENCY ANAEMIA [None]
  - RENAL FAILURE ACUTE [None]
  - RESPIRATORY DISORDER [None]
  - URINARY BLADDER HAEMORRHAGE [None]
  - URINARY RETENTION [None]
  - URINARY TRACT INFECTION [None]
